FAERS Safety Report 8224805-4 (Version None)
Quarter: 2012Q1

REPORT INFORMATION
  Report Type: 
  Country: None (occurrence: None)
  Receive Date: 20120321
  Receipt Date: 20120314
  Transmission Date: 20120608
  Serious: Yes (Death, Hospitalization)
  Sender: FDA-Public Use
  Company Number: CA-UCBSA-046269

PATIENT
  Age: 85 Year
  Sex: Female
  Weight: 57.6 kg

DRUGS (2)
  1. CIMZIA [Suspect]
     Indication: RHEUMATOID ARTHRITIS
     Route: 058
     Dates: start: 20110117
  2. CIMZIA [Suspect]
     Route: 058
     Dates: start: 20101206, end: 20110103

REACTIONS (2)
  - DEATH [None]
  - CELLULITIS [None]
